FAERS Safety Report 8053323-1 (Version None)
Quarter: 2012Q1

REPORT INFORMATION
  Report Type: 
  Country: None (occurrence: None)
  Receive Date: 20120118
  Receipt Date: 20120105
  Transmission Date: 20120608
  Serious: Yes (Hospitalization)
  Sender: FDA-Public Use
  Company Number: AU-WATSON-2012-00528

PATIENT
  Age: 74 Year
  Sex: Male

DRUGS (1)
  1. MELOXICAM [Suspect]
     Indication: PAIN IN JAW
     Dosage: UNK

REACTIONS (1)
  - RHABDOMYOLYSIS [None]
